FAERS Safety Report 22106529 (Version 1)
Quarter: 2023Q1

REPORT INFORMATION
  Report Type: Spontaneous
  Country: US (occurrence: US)
  Receive Date: 20230317
  Receipt Date: 20230317
  Transmission Date: 20230417
  Serious: No
  Sender: FDA-Public Use
  Company Number: US-ABBVIE-4321535

PATIENT
  Age: 74 Year
  Sex: Male

DRUGS (2)
  1. HUMIRA [Suspect]
     Active Substance: ADALIMUMAB
     Indication: Psoriatic arthropathy
     Dosage: CF
     Route: 058
  2. HUMIRA [Suspect]
     Active Substance: ADALIMUMAB

REACTIONS (4)
  - Injection site haemorrhage [Recovered/Resolved]
  - Injection site reaction [Recovered/Resolved]
  - Injection site erythema [Recovered/Resolved]
  - Device issue [Not Recovered/Not Resolved]

NARRATIVE: CASE EVENT DATE: 20230216
